FAERS Safety Report 11184559 (Version 1)
Quarter: 2015Q2

REPORT INFORMATION
  Report Type: Spontaneous
  Country: IT (occurrence: IT)
  Receive Date: 20150612
  Receipt Date: 20150612
  Transmission Date: 20150821
  Serious: Yes (Other)
  Sender: FDA-Public Use
  Company Number: IT-ACTAVIS-2015-11540

PATIENT
  Age: 47 Year
  Sex: Female
  Weight: 55 kg

DRUGS (1)
  1. DOCETAXEL (UNKNOWN) [Suspect]
     Active Substance: DOCETAXEL
     Indication: BREAST CANCER
     Dosage: 115 MG, DAILY
     Route: 042
     Dates: start: 20150312, end: 20150512

REACTIONS (3)
  - Throat tightness [Recovered/Resolved]
  - Chest discomfort [Recovered/Resolved]
  - Dyspnoea [Recovered/Resolved]

NARRATIVE: CASE EVENT DATE: 20150312
